FAERS Safety Report 18540099 (Version 1)
Quarter: 2020Q4

REPORT INFORMATION
  Report Type: Spontaneous
  Country: CN (occurrence: CN)
  Receive Date: 20201124
  Receipt Date: 20201124
  Transmission Date: 20210114
  Serious: Yes (Disabling, Other)
  Sender: FDA-Public Use
  Company Number: CN-PFIZER INC-2020459599

PATIENT
  Age: 53 Year
  Sex: Male
  Weight: 70 kg

DRUGS (5)
  1. ASPIRIN [ACETYLSALICYLIC ACID] [Concomitant]
     Active Substance: ASPIRIN
     Indication: PLATELET AGGREGATION ABNORMAL
     Dosage: 0.1 MG, 1X/DAY
     Route: 048
     Dates: start: 20201006, end: 20201023
  2. PLAVIX [Concomitant]
     Active Substance: CLOPIDOGREL BISULFATE
     Indication: PLATELET AGGREGATION ABNORMAL
     Dosage: 75 MG, 1X/DAY
     Route: 048
     Dates: start: 20201006, end: 20201023
  3. LIPITOR [Suspect]
     Active Substance: ATORVASTATIN CALCIUM
     Indication: LIPIDS ABNORMAL
     Dosage: 20 MG, 1X/DAY
     Route: 048
     Dates: start: 20201006, end: 20201014
  4. LIPITOR [Suspect]
     Active Substance: ATORVASTATIN CALCIUM
     Indication: PLAQUE SHIFT
  5. RAMIPRIL. [Concomitant]
     Active Substance: RAMIPRIL
     Indication: CARDIOMYOPATHY
     Dosage: 2.5 MG, 1X/DAY
     Route: 048
     Dates: start: 20201006, end: 20201023

REACTIONS (8)
  - Cardiac tamponade [Unknown]
  - Hyperhidrosis [Unknown]
  - Drug-induced liver injury [Recovering/Resolving]
  - Nausea [Unknown]
  - Congestive hepatopathy [Recovering/Resolving]
  - Tachypnoea [Unknown]
  - Acute hepatic failure [Recovering/Resolving]
  - Chest discomfort [Unknown]

NARRATIVE: CASE EVENT DATE: 20201012
